FAERS Safety Report 19693488 (Version 2)
Quarter: 2022Q2

REPORT INFORMATION
  Report Type: Report from Study
  Country: US (occurrence: US)
  Receive Date: 20210813
  Receipt Date: 20220606
  Transmission Date: 20220721
  Serious: No
  Sender: FDA-Public Use
  Company Number: US-ACADIA PHARMACEUTICALS INC.-ACA-2021-PIM-002690

PATIENT
  Sex: Female

DRUGS (14)
  1. NUPLAZID [Suspect]
     Active Substance: PIMAVANSERIN TARTRATE
     Indication: Parkinson^s disease
     Dosage: 34 MILLIGRAM, QD
     Route: 048
  2. NUPLAZID [Suspect]
     Active Substance: PIMAVANSERIN TARTRATE
     Indication: Parkinson^s disease
     Dosage: 10 MILLIGRAM, QD
     Route: 048
     Dates: start: 202106
  3. CARBIDOPA [Concomitant]
     Active Substance: CARBIDOPA
  4. CHLORHEXIDINE GLUCONATE [Concomitant]
     Active Substance: CHLORHEXIDINE GLUCONATE
  5. CARBIDOPA\LEVODOPA [Concomitant]
     Active Substance: CARBIDOPA\LEVODOPA
  6. MIDODRINE HYDROCHLORIDE [Concomitant]
     Active Substance: MIDODRINE HYDROCHLORIDE
  7. MODAFINIL [Concomitant]
     Active Substance: MODAFINIL
  8. PANTOPRAZOLE SODIUM [Concomitant]
     Active Substance: PANTOPRAZOLE SODIUM
  9. AMANTADINE [Concomitant]
     Active Substance: AMANTADINE
  10. INBRIJA [Concomitant]
     Active Substance: LEVODOPA
  11. ZOLPIDEM TARTRATE [Concomitant]
     Active Substance: ZOLPIDEM TARTRATE
  12. DOXEPIN HCL [Concomitant]
     Active Substance: DOXEPIN HYDROCHLORIDE
  13. MEGESTROL ACETATE [Concomitant]
     Active Substance: MEGESTROL ACETATE
  14. AMITIZA [Concomitant]
     Active Substance: LUBIPROSTONE

REACTIONS (10)
  - Speech disorder [Unknown]
  - Tremor [Unknown]
  - Balance disorder [Unknown]
  - Decreased appetite [Unknown]
  - Dehydration [Unknown]
  - Delusion [Unknown]
  - Underdose [Unknown]
  - Hallucination, visual [Unknown]
  - Drug ineffective [Unknown]
  - Hallucination [Unknown]
